FAERS Safety Report 5909267-1 (Version None)
Quarter: 2008Q4

REPORT INFORMATION
  Report Type: 
  Country: None (occurrence: None)
  Receive Date: 20081006
  Receipt Date: 20081002
  Transmission Date: 20090506
  Serious: Yes (Other)
  Sender: FDA-Public Use
  Company Number: CA-ABBOTT-08P-028-0479527-00

PATIENT
  Age: 65 Year
  Sex: Female

DRUGS (1)
  1. TEVETEN [Suspect]
     Indication: DRUG USE FOR UNKNOWN INDICATION
     Route: 065
     Dates: start: 20080925, end: 20080925

REACTIONS (4)
  - COUGH [None]
  - FEELING ABNORMAL [None]
  - PALPITATIONS [None]
  - SWELLING [None]
